FAERS Safety Report 24573316 (Version 1)
Quarter: 2024Q4

REPORT INFORMATION
  Report Type: Spontaneous
  Country: FR (occurrence: FR)
  Receive Date: 20241101
  Receipt Date: 20241101
  Transmission Date: 20250114
  Serious: Yes (Other)
  Sender: TEVA
  Company Number: None

PATIENT
  Age: 40 Year
  Sex: Female

DRUGS (1)
  1. TRAMADOL [Suspect]
     Active Substance: TRAMADOL
     Indication: Drug dependence
     Dosage: TRAMADOL HYDROCHLORIDE
     Route: 048
     Dates: start: 2023

REACTIONS (1)
  - Drug dependence [Not Recovered/Not Resolved]
